FAERS Safety Report 18347320 (Version 44)
Quarter: 2022Q1

REPORT INFORMATION
  Report Type: Report from Study
  Country: CN (occurrence: None)
  Receive Date: 20201005
  Receipt Date: 20220216
  Transmission Date: 20220423
  Serious: Yes (Hospitalization)
  Sender: FDA-Public Use
  Company Number: CN-ROCHE-2687402

PATIENT
  Age: 62 Year
  Sex: Female
  Weight: 64.1 kg

DRUGS (105)
  1. POLATUZUMAB VEDOTIN [Suspect]
     Active Substance: POLATUZUMAB VEDOTIN
     Indication: Diffuse large B-cell lymphoma
     Dosage: MOST RECENT DOSE PRIOR TO LUNG INFECTION FIRST EPISODE: 12/JUL/2020. MOST RECENT DOSE PRIOR TO LUNG
     Route: 042
     Dates: start: 20200712
  2. RITUXIMAB [Suspect]
     Active Substance: RITUXIMAB
     Indication: Diffuse large B-cell lymphoma
     Dosage: MOST RECENT DOSE PRIOR TO LUNG INFECTION FIRST EPISODE: 11/JUL/2020?MOST RECENT DOSE (648.75 MG) PRI
     Route: 041
     Dates: start: 20200711
  3. BENDAMUSTINE [Suspect]
     Active Substance: BENDAMUSTINE
     Indication: Diffuse large B-cell lymphoma
     Dosage: MOST RECENT DOSE PRIOR TO LUNG INFECTION FIRST EPISODE: 13/JUL/2020?MOST RECENT DOSE (155.7 MG)  PRI
     Route: 042
     Dates: start: 20200712
  4. PEGYLATED RECOMBINANT HUMAN GRANULOCYTE COLONY STIMULATING FACTOR [Concomitant]
     Indication: Leukopenia
     Dates: start: 20201012, end: 20201012
  5. PEGYLATED RECOMBINANT HUMAN GRANULOCYTE COLONY STIMULATING FACTOR [Concomitant]
     Dates: start: 20200912, end: 20200912
  6. PEGYLATED RECOMBINANT HUMAN GRANULOCYTE COLONY STIMULATING FACTOR [Concomitant]
     Dates: start: 20200715, end: 20200715
  7. POTASSIUM CHLORIDE [Concomitant]
     Active Substance: POTASSIUM CHLORIDE
     Indication: Hypokalaemia
     Dates: start: 20201019, end: 20201019
  8. POTASSIUM CHLORIDE [Concomitant]
     Active Substance: POTASSIUM CHLORIDE
     Dates: start: 20200909, end: 20200911
  9. POTASSIUM CHLORIDE [Concomitant]
     Active Substance: POTASSIUM CHLORIDE
     Dates: start: 20201003, end: 20201004
  10. POTASSIUM CHLORIDE [Concomitant]
     Active Substance: POTASSIUM CHLORIDE
     Dates: start: 20200709, end: 20200713
  11. POTASSIUM CHLORIDE [Concomitant]
     Active Substance: POTASSIUM CHLORIDE
     Dates: start: 20200802, end: 20200803
  12. POTASSIUM CHLORIDE [Concomitant]
     Active Substance: POTASSIUM CHLORIDE
     Dates: start: 20200713, end: 20200714
  13. POTASSIUM CHLORIDE [Concomitant]
     Active Substance: POTASSIUM CHLORIDE
     Dates: start: 20200716, end: 20200718
  14. POTASSIUM CHLORIDE [Concomitant]
     Active Substance: POTASSIUM CHLORIDE
     Dates: start: 20200824, end: 20200824
  15. POTASSIUM CHLORIDE [Concomitant]
     Active Substance: POTASSIUM CHLORIDE
     Dates: start: 20201003, end: 20201004
  16. XYZAL [Concomitant]
     Active Substance: LEVOCETIRIZINE DIHYDROCHLORIDE
     Indication: Rash
     Dates: start: 20200820, end: 20200901
  17. CALAMINE LOTION [Concomitant]
     Active Substance: CALAMINE LOTION
     Indication: Rash
     Dates: start: 20200902
  18. CALAMINE LOTION [Concomitant]
     Active Substance: CALAMINE LOTION
     Dosage: TREATMENT OF SKIN RASH
     Dates: start: 20200818, end: 20201110
  19. SODIUM BICARBONATE [Concomitant]
     Active Substance: SODIUM BICARBONATE
     Dates: start: 20200909, end: 20200911
  20. SODIUM BICARBONATE [Concomitant]
     Active Substance: SODIUM BICARBONATE
     Dates: start: 20200709, end: 20200713
  21. SODIUM BICARBONATE [Concomitant]
     Active Substance: SODIUM BICARBONATE
     Dates: start: 20200716, end: 20200723
  22. SODIUM BICARBONATE [Concomitant]
     Active Substance: SODIUM BICARBONATE
     Dates: start: 20200820, end: 20200824
  23. TROPISETRON HYDROCHLORIDE [Concomitant]
     Active Substance: TROPISETRON HYDROCHLORIDE
     Indication: Prophylaxis
     Dates: start: 20200909, end: 20200909
  24. TROPISETRON HYDROCHLORIDE [Concomitant]
     Active Substance: TROPISETRON HYDROCHLORIDE
     Dates: start: 20200909, end: 20200910
  25. TROPISETRON HYDROCHLORIDE [Concomitant]
     Active Substance: TROPISETRON HYDROCHLORIDE
     Dates: start: 20201009, end: 20201009
  26. TROPISETRON HYDROCHLORIDE [Concomitant]
     Active Substance: TROPISETRON HYDROCHLORIDE
     Dates: start: 20200712, end: 20200713
  27. TROPISETRON HYDROCHLORIDE [Concomitant]
     Active Substance: TROPISETRON HYDROCHLORIDE
     Dates: start: 20201009, end: 20201010
  28. LORATADINE [Concomitant]
     Active Substance: LORATADINE
     Indication: Rash
     Dates: start: 20200910, end: 20200911
  29. LORATADINE [Concomitant]
     Active Substance: LORATADINE
     Indication: Pruritus
     Dates: start: 20201010, end: 20201010
  30. LORATADINE [Concomitant]
     Active Substance: LORATADINE
     Dates: start: 20200727, end: 20200729
  31. LORATADINE [Concomitant]
     Active Substance: LORATADINE
     Dates: start: 20200810, end: 20200813
  32. DIPHENHYDRAMINE HYDROCHLORIDE [Concomitant]
     Active Substance: DIPHENHYDRAMINE HYDROCHLORIDE
     Indication: Prophylaxis
     Dates: start: 20200909, end: 20200909
  33. DIPHENHYDRAMINE HYDROCHLORIDE [Concomitant]
     Active Substance: DIPHENHYDRAMINE HYDROCHLORIDE
     Dates: start: 20201010, end: 20201010
  34. DIPHENHYDRAMINE HYDROCHLORIDE [Concomitant]
     Active Substance: DIPHENHYDRAMINE HYDROCHLORIDE
     Dates: start: 20201009, end: 20201009
  35. DIPHENHYDRAMINE HYDROCHLORIDE [Concomitant]
     Active Substance: DIPHENHYDRAMINE HYDROCHLORIDE
     Dates: start: 20200711, end: 20200712
  36. LIDOCAINE HYDROCHLORIDE [Concomitant]
     Active Substance: LIDOCAINE HYDROCHLORIDE
     Indication: Stomatitis
     Dates: start: 20200910, end: 20200910
  37. LIDOCAINE HYDROCHLORIDE [Concomitant]
     Active Substance: LIDOCAINE HYDROCHLORIDE
     Dates: start: 20200703, end: 20200703
  38. LIDOCAINE HYDROCHLORIDE [Concomitant]
     Active Substance: LIDOCAINE HYDROCHLORIDE
     Dates: start: 20200723, end: 20200723
  39. PREDNISONE ACETATE [Concomitant]
     Active Substance: PREDNISONE ACETATE
     Route: 048
     Dates: start: 20200909, end: 20200909
  40. PREDNISONE ACETATE [Concomitant]
     Active Substance: PREDNISONE ACETATE
     Route: 048
     Dates: start: 20200711, end: 20200712
  41. PREDNISONE ACETATE [Concomitant]
     Active Substance: PREDNISONE ACETATE
     Route: 048
     Dates: start: 20200730, end: 20200730
  42. PREDNISONE ACETATE [Concomitant]
     Active Substance: PREDNISONE ACETATE
     Route: 048
     Dates: start: 20201112, end: 20201117
  43. PREDNISONE ACETATE [Concomitant]
     Active Substance: PREDNISONE ACETATE
     Route: 048
     Dates: start: 20201102, end: 20201111
  44. PREDNISONE ACETATE [Concomitant]
     Active Substance: PREDNISONE ACETATE
     Route: 048
     Dates: start: 20201118, end: 20201124
  45. PREDNISONE ACETATE [Concomitant]
     Active Substance: PREDNISONE ACETATE
     Route: 048
     Dates: start: 20201125, end: 20201201
  46. PREDNISONE ACETATE [Concomitant]
     Active Substance: PREDNISONE ACETATE
     Route: 048
     Dates: start: 20201209, end: 20201215
  47. PREDNISONE ACETATE [Concomitant]
     Active Substance: PREDNISONE ACETATE
     Route: 048
     Dates: start: 20201216, end: 20201222
  48. PREDNISONE ACETATE [Concomitant]
     Active Substance: PREDNISONE ACETATE
     Route: 048
     Dates: start: 20201202, end: 20201208
  49. PREDNISONE ACETATE [Concomitant]
     Active Substance: PREDNISONE ACETATE
     Route: 048
     Dates: start: 20201223, end: 20201229
  50. PREDNISONE ACETATE [Concomitant]
     Active Substance: PREDNISONE ACETATE
     Route: 048
     Dates: start: 20201009, end: 20201009
  51. SOLU-MEDROL [Concomitant]
     Active Substance: METHYLPREDNISOLONE SODIUM SUCCINATE
     Dates: start: 20200926, end: 20201006
  52. DEXAMETHASONE SODIUM PHOSPHATE [Concomitant]
     Active Substance: DEXAMETHASONE SODIUM PHOSPHATE
     Indication: Pruritus
     Route: 042
     Dates: start: 20201010, end: 20201010
  53. DEXAMETHASONE SODIUM PHOSPHATE [Concomitant]
     Active Substance: DEXAMETHASONE SODIUM PHOSPHATE
     Indication: Prophylaxis
     Route: 050
     Dates: start: 20200731, end: 20200731
  54. OMEPRAZOLE SODIUM [Concomitant]
     Active Substance: OMEPRAZOLE SODIUM
     Route: 042
     Dates: start: 20200929, end: 20201006
  55. OMEPRAZOLE SODIUM [Concomitant]
     Active Substance: OMEPRAZOLE SODIUM
     Route: 042
     Dates: start: 20201010, end: 20201010
  56. GANCICLOVIR [Concomitant]
     Active Substance: GANCICLOVIR
     Route: 048
     Dates: start: 20200711
  57. METOCLOPRAMIDE DIHYDROCHLORIDE [Concomitant]
     Indication: Prophylaxis of nausea and vomiting
     Dates: start: 20200715, end: 20200715
  58. ALLOPURINOL [Concomitant]
     Active Substance: ALLOPURINOL
     Indication: Blood uric acid
     Dates: start: 20200711, end: 20200715
  59. ALLOPURINOL [Concomitant]
     Active Substance: ALLOPURINOL
     Dates: start: 20200709, end: 20200709
  60. ALLOPURINOL [Concomitant]
     Active Substance: ALLOPURINOL
     Dates: start: 20200716, end: 20200723
  61. ALLOPURINOL [Concomitant]
     Active Substance: ALLOPURINOL
     Dates: start: 20200709, end: 20200715
  62. ALLOPURINOL [Concomitant]
     Active Substance: ALLOPURINOL
     Dates: start: 20200820, end: 20200824
  63. ALLOPURINOL [Concomitant]
     Active Substance: ALLOPURINOL
     Dates: start: 20200909, end: 20200911
  64. GLYCOSAMINOGLYCANS [Concomitant]
     Active Substance: GLYCOSAMINOGLYCANS
     Dates: start: 20200709, end: 20200709
  65. AVELOX [Concomitant]
     Active Substance: MOXIFLOXACIN HYDROCHLORIDE
     Dates: start: 20200713, end: 20200713
  66. AVELOX [Concomitant]
     Active Substance: MOXIFLOXACIN HYDROCHLORIDE
     Dates: start: 20201113, end: 20201119
  67. CALCIUM GLUCONATE [Concomitant]
     Active Substance: CALCIUM GLUCONATE
     Dates: start: 20200714, end: 20200714
  68. METOPROLOL TARTRATE [Concomitant]
     Active Substance: METOPROLOL TARTRATE
     Indication: Sinus tachycardia
     Dates: start: 20200715, end: 20200715
  69. MAGNESIUM ASPARTATE\POTASSIUM ASPARTATE [Concomitant]
     Active Substance: MAGNESIUM ASPARTATE\POTASSIUM ASPARTATE
     Dates: start: 20200714, end: 20200714
  70. SULFAMETHOXAZOLE [Concomitant]
     Active Substance: SULFAMETHOXAZOLE
     Indication: Pyrexia
     Dates: start: 20200711, end: 20200726
  71. CYTARABINE [Concomitant]
     Active Substance: CYTARABINE
     Dates: start: 20200731, end: 20200731
  72. GLYCERIN [Concomitant]
     Active Substance: GLYCERIN
     Indication: Constipation
     Dates: start: 20200801, end: 20200802
  73. GLYCERIN [Concomitant]
     Active Substance: GLYCERIN
     Dates: start: 20201020, end: 20201020
  74. FUROSEMIDE [Concomitant]
     Active Substance: FUROSEMIDE
     Indication: Polyuria
     Dates: start: 20200709, end: 20200714
  75. FUROSEMIDE [Concomitant]
     Active Substance: FUROSEMIDE
     Dates: start: 20201023, end: 20201023
  76. COMPOUND CHLORHEXIDINE GARGLE [Concomitant]
     Dates: start: 20200716, end: 20200716
  77. BICYCLOL [Concomitant]
     Active Substance: BICYCLOL
     Dates: start: 20200716, end: 20200723
  78. SPIRONOLACTONE [Concomitant]
     Active Substance: SPIRONOLACTONE
     Indication: Polyuria
     Dates: start: 20200717, end: 20200717
  79. COMPOUND METHOXYPHENAMINE [Concomitant]
     Dosage: USED TO TREAT ASTHMA
     Dates: start: 20200718, end: 20200723
  80. NYSFUNGIN [Concomitant]
     Indication: Stomatitis
     Dates: start: 20200723, end: 20200723
  81. GENTAMICIN SULFATE [Concomitant]
     Active Substance: GENTAMICIN SULFATE
     Indication: Stomatitis
     Dates: start: 20200723, end: 20200723
  82. SODIUM CHLORIDE [Concomitant]
     Active Substance: SODIUM CHLORIDE
     Indication: Productive cough
     Dates: start: 20200716, end: 20200716
  83. METHYLPREDNISOLONE SODIUM SUCCINATE [Concomitant]
     Active Substance: METHYLPREDNISOLONE SODIUM SUCCINATE
     Indication: Antiinflammatory therapy
     Route: 042
     Dates: start: 20200929, end: 20201002
  84. METHYLPREDNISOLONE SODIUM SUCCINATE [Concomitant]
     Active Substance: METHYLPREDNISOLONE SODIUM SUCCINATE
     Route: 042
     Dates: start: 20201002, end: 20201006
  85. METHYLPREDNISOLONE SODIUM SUCCINATE [Concomitant]
     Active Substance: METHYLPREDNISOLONE SODIUM SUCCINATE
     Dates: start: 20200809, end: 20200809
  86. METHYLPREDNISOLONE SODIUM SUCCINATE [Concomitant]
     Active Substance: METHYLPREDNISOLONE SODIUM SUCCINATE
     Dates: start: 20201020, end: 20201102
  87. LANSOPRAZOLE [Concomitant]
     Active Substance: LANSOPRAZOLE
     Indication: Prophylaxis
     Dates: start: 20201020, end: 20201104
  88. POTASSIUM CITRATE [Concomitant]
     Active Substance: POTASSIUM CITRATE
     Indication: Hypokalaemia
     Dates: start: 20201030, end: 20201030
  89. POTASSIUM CITRATE [Concomitant]
     Active Substance: POTASSIUM CITRATE
     Dates: start: 20200717, end: 20200720
  90. RIVAROXABAN [Concomitant]
     Active Substance: RIVAROXABAN
     Indication: Venous thrombosis
     Dates: start: 20201104, end: 20201104
  91. RIVAROXABAN [Concomitant]
     Active Substance: RIVAROXABAN
     Dates: start: 20201201
  92. ETHAMSYLATE [Concomitant]
     Active Substance: ETHAMSYLATE
     Dosage: PREVENT BLEEDING
     Dates: start: 20200718, end: 20200719
  93. ALBUMIN HUMAN [Concomitant]
     Active Substance: ALBUMIN HUMAN
     Indication: Hypoalbuminaemia
     Dates: start: 20200716, end: 20200717
  94. ALBUMIN HUMAN [Concomitant]
     Active Substance: ALBUMIN HUMAN
     Dates: start: 20200714, end: 20200714
  95. OXYGEN [Concomitant]
     Active Substance: OXYGEN
     Dates: start: 20200716, end: 20200723
  96. MAGNESIUM ISOGLYCYRRHIZINATE [Concomitant]
     Active Substance: MAGNESIUM ISOGLYCYRRHIZINATE
     Dates: start: 20200711, end: 20200713
  97. SULFAMETHOXAZOLE [Concomitant]
     Active Substance: SULFAMETHOXAZOLE
     Dates: start: 20200711, end: 20200713
  98. CLARITHROMYCIN [Concomitant]
     Active Substance: CLARITHROMYCIN
     Dates: start: 20201106, end: 20201112
  99. KANG FU XIN YE [Concomitant]
     Indication: Stomatitis
     Dates: start: 20200723, end: 20200723
  100. EBASTINE [Concomitant]
     Active Substance: EBASTINE
     Dates: start: 20200820, end: 20200827
  101. THYMOPENTIN [Concomitant]
     Active Substance: THYMOPENTIN
     Dates: start: 20201028, end: 20201029
  102. OMEPRAZOLE AND SODIUM BICARBONATE [Concomitant]
     Active Substance: OMEPRAZOLE\SODIUM BICARBONATE
     Dates: start: 20201103, end: 20201103
  103. HEPARIN SODIUM [Concomitant]
     Active Substance: HEPARIN SODIUM
     Dates: start: 20201019, end: 20201019
  104. COMPOUND ELECTROLYTES AND GLUCOSE INJECTION MG3 [Concomitant]
     Dates: start: 20200709, end: 20200713
  105. CAR-T [Concomitant]
     Dates: start: 20210507, end: 20210517

REACTIONS (2)
  - Interstitial lung disease [Not Recovered/Not Resolved]
  - Pneumonia [Recovered/Resolved]

NARRATIVE: CASE EVENT DATE: 20200713
